FAERS Safety Report 11524446 (Version 1)
Quarter: 2015Q3

REPORT INFORMATION
  Report Type: Spontaneous
  Country: US (occurrence: US)
  Receive Date: 20150903
  Receipt Date: 20150903
  Transmission Date: 20151125
  Serious: No
  Sender: FDA-Public Use
  Company Number: US-ELI_LILLY_AND_COMPANY-US201306006802

PATIENT
  Age: 67 Year
  Sex: Female

DRUGS (10)
  1. MIRTAZAPINE. [Concomitant]
     Active Substance: MIRTAZAPINE
     Dosage: 45 MG, UNKNOWN
     Route: 065
  2. TRIAMTEREN HCT [Concomitant]
     Indication: DIURETIC THERAPY
     Dosage: 75 MG, UNKNOWN
     Route: 065
  3. CYMBALTA [Suspect]
     Active Substance: DULOXETINE HYDROCHLORIDE
     Dosage: 20 MG, TID
     Route: 065
     Dates: end: 2012
  4. CYMBALTA [Suspect]
     Active Substance: DULOXETINE HYDROCHLORIDE
     Indication: PAIN
     Dosage: 45 MG, UNKNOWN
     Route: 065
  5. AMBIEN [Concomitant]
     Active Substance: ZOLPIDEM TARTRATE
     Dosage: 10 MG, UNKNOWN
     Route: 065
  6. LISINOPRIL. [Concomitant]
     Active Substance: LISINOPRIL
     Dosage: 10 MG, UNKNOWN
     Route: 065
  7. TRILIPIX [Concomitant]
     Active Substance: FENOFIBRIC ACID
     Dosage: UNK, UNKNOWN
     Route: 065
  8. CYMBALTA [Suspect]
     Active Substance: DULOXETINE HYDROCHLORIDE
     Dosage: 20 MG, TID
     Route: 065
     Dates: start: 20130606
  9. VALIUM [Concomitant]
     Active Substance: DIAZEPAM
     Dosage: UNK, UNKNOWN
     Route: 065
  10. FENTANYL. [Concomitant]
     Active Substance: FENTANYL
     Dosage: UNK, UNKNOWN
     Route: 062

REACTIONS (15)
  - Inflammation [Unknown]
  - Stress [Unknown]
  - Dyspnoea [Unknown]
  - Eye irritation [Recovered/Resolved]
  - Sinusitis [Unknown]
  - Pruritus [Unknown]
  - Eating disorder [Unknown]
  - Ear swelling [Unknown]
  - Foreign body sensation in eyes [Recovered/Resolved]
  - Pain [Unknown]
  - Dysphagia [Unknown]
  - Furuncle [Recovering/Resolving]
  - Eye swelling [Recovered/Resolved]
  - Local swelling [Unknown]
  - Pruritus generalised [Unknown]
